FAERS Safety Report 5083599-4 (Version None)
Quarter: 2006Q3

REPORT INFORMATION
  Report Type: 
  Country: None (occurrence: None)
  Receive Date: 20060814
  Receipt Date: 20060803
  Transmission Date: 20061208
  Serious: Yes (Hospitalization)
  Sender: FDA-Public Use
  Company Number: 2006038710

PATIENT
  Age: 20 Year
  Sex: Male
  Weight: 45 kg

DRUGS (2)
  1. GENOTROPIN [Suspect]
     Indication: HYPOPITUITARISM
     Dosage: 0.6 MG (0.6 MG, DAILY), SUBCUTANEOUS
     Route: 058
     Dates: start: 20030909, end: 20050815
  2. GENOTROPIN [Suspect]
     Indication: HYPOPITUITARISM
     Dosage: 0.6 MG (0.6 MG, DAILY), SUBCUTANEOUS
     Route: 058
     Dates: start: 20060717

REACTIONS (2)
  - DISEASE RECURRENCE [None]
  - HYPOPITUITARISM [None]
